FAERS Safety Report 8060388-X (Version None)
Quarter: 2012Q1

REPORT INFORMATION
  Report Type: 
  Country: None (occurrence: None)
  Receive Date: 20120120
  Receipt Date: 20120117
  Transmission Date: 20120608
  Serious: Yes (Hospitalization)
  Sender: FDA-Public Use
  Company Number: FR-PFIZER INC-2012012421

PATIENT
  Age: 91 Year
  Sex: Female

DRUGS (3)
  1. TIAPRIDAL [Suspect]
     Dosage: 5 GTT, 1X/DAY
     Route: 048
     Dates: start: 20110103, end: 20111202
  2. EFFEXOR XR [Suspect]
     Dosage: 37.5 MG, 1X/DAY
     Route: 048
     Dates: start: 20101203, end: 20111202
  3. IMOVANE [Suspect]
     Dosage: 3.75 MG, 1X/DAY
     Route: 048
     Dates: start: 20111125, end: 20111202

REACTIONS (3)
  - HALLUCINATION [None]
  - CONFUSIONAL STATE [None]
  - DISORIENTATION [None]
